FAERS Safety Report 6958200-2 (Version None)
Quarter: 2010Q3

REPORT INFORMATION
  Report Type: 
  Country: None (occurrence: None)
  Receive Date: 20100831
  Receipt Date: 20100823
  Transmission Date: 20110219
  Serious: Yes (Hospitalization)
  Sender: FDA-Public Use
  Company Number: SG-KINGPHARMUSA00001-K201001073

PATIENT
  Age: 55 Year
  Sex: Male

DRUGS (1)
  1. AVINZA [Suspect]

REACTIONS (6)
  - ACUTE GENERALISED EXANTHEMATOUS PUSTULOSIS [None]
  - ERYTHEMA [None]
  - FACE OEDEMA [None]
  - PYREXIA [None]
  - RASH MACULAR [None]
  - RASH PUSTULAR [None]
